FAERS Safety Report 7581538-5 (Version None)
Quarter: 2011Q2

REPORT INFORMATION
  Report Type: 
  Country: None (occurrence: None)
  Receive Date: 20110629
  Receipt Date: 20110622
  Transmission Date: 20111010
  Serious: Yes (Death, Hospitalization)
  Sender: FDA-Public Use
  Company Number: PHHY2011ID56516

PATIENT
  Age: 77 Year
  Sex: Male
  Weight: 45 kg

DRUGS (3)
  1. PIROXICAM [Concomitant]
     Indication: ARTHRITIS
     Dosage: 20 MG DAILY
     Route: 048
  2. EXFORGE [Suspect]
     Indication: HYPERTENSION
     Dosage: VALSARTAN 80MG AND AMLODIPINE 05MG
     Route: 046
  3. ALLOPURINOL [Concomitant]
     Indication: HYPERURICAEMIA
     Dosage: 300 MG DAILY
     Route: 048

REACTIONS (2)
  - DEHYDRATION [None]
  - HYPOPHAGIA [None]
